FAERS Safety Report 20510778 (Version 4)
Quarter: 2022Q2

REPORT INFORMATION
  Report Type: Spontaneous
  Country: CO (occurrence: CO)
  Receive Date: 20220224
  Receipt Date: 20220506
  Transmission Date: 20220721
  Serious: Yes (Hospitalization, Other)
  Sender: FDA-Public Use
  Company Number: CO-ORG100014127-2022000220

PATIENT
  Age: 28 Year
  Sex: Female

DRUGS (12)
  1. LYSODREN [Suspect]
     Active Substance: MITOTANE
     Indication: Adrenocortical carcinoma
     Dosage: 500 MG EVERY 08 HOURS
     Route: 048
     Dates: start: 20220107, end: 20220216
  2. LYSODREN [Suspect]
     Active Substance: MITOTANE
     Indication: Adrenocortical carcinoma
     Dosage: 500 MG EVERY 08 HOURS
     Route: 048
     Dates: start: 20220226
  3. PANTOPRAZOLE [Concomitant]
     Active Substance: PANTOPRAZOLE
     Indication: Gastric disorder
  4. RANITIDINE [Concomitant]
     Active Substance: RANITIDINE
     Indication: Chemotherapy side effect prophylaxis
     Dosage: 50 MG IV DAY 1 TO 4
     Route: 042
  5. ONDANSETRON [Concomitant]
     Active Substance: ONDANSETRON
     Indication: Chemotherapy side effect prophylaxis
     Dosage: 16 MG IV DAYS 1 TO 4
     Route: 042
  6. DEXAMETHASONE [Concomitant]
     Active Substance: DEXAMETHASONE
     Indication: Chemotherapy side effect prophylaxis
     Dosage: 8 MG IV DAYS 1 TO 4
     Route: 042
  7. DOXORUBICIN [Concomitant]
     Active Substance: DOXORUBICIN
     Indication: Chemotherapy
     Dosage: 64 MG IV DAY 1 IN 200 CC OSS, 9%
     Route: 042
  8. CISPLATIN [Concomitant]
     Active Substance: CISPLATIN
     Indication: Chemotherapy
     Dosage: 60 MG IV DAY 3 AND 4 IN 200 CC OSS, 9%
     Route: 042
  9. MANNITOL [Concomitant]
     Active Substance: MANNITOL
     Indication: Chemotherapy
     Dosage: 100 CC IV DAY 3 AND 4 IN PARALLEL WITH CISPLATIN
     Route: 042
  10. ETOPOSIDE [Concomitant]
     Active Substance: ETOPOSIDE
     Indication: Chemotherapy
     Dosage: 160 MG IV DAY 2, 3 AND 4 IN 200 CC SSO, 9%
     Route: 042
  11. PREDNISOLONE [Concomitant]
     Active Substance: PREDNISOLONE
     Indication: Chemotherapy
     Dosage: 10 MG PO DAILY
     Route: 048
  12. PEGFILGRASTIM [Concomitant]
     Active Substance: PEGFILGRASTIM
     Indication: Product used for unknown indication
     Dosage: 1 AMPOULE SC DAY 5
     Route: 058

REACTIONS (8)
  - Syncope [Recovered/Resolved]
  - Muscular weakness [Recovered/Resolved]
  - Pyrexia [Recovered/Resolved]
  - Oliguria [Recovered/Resolved]
  - Somnolence [Recovered/Resolved]
  - Nausea [Recovered/Resolved]
  - Vomiting [Recovered/Resolved]
  - Asthenia [Recovered/Resolved]

NARRATIVE: CASE EVENT DATE: 20220201
